FAERS Safety Report 16697556 (Version 1)
Quarter: 2019Q3

REPORT INFORMATION
  Report Type: Spontaneous
  Country: FR (occurrence: FR)
  Receive Date: 20190813
  Receipt Date: 20190813
  Transmission Date: 20191004
  Serious: Yes (Hospitalization)
  Sender: FDA-Public Use
  Company Number: PHHY2019FR186364

PATIENT
  Age: 27 Year
  Sex: Male
  Weight: 66 kg

DRUGS (3)
  1. PARACETAMOL [Suspect]
     Active Substance: ACETAMINOPHEN
     Indication: POISONING DELIBERATE
     Dosage: 40 G, UNK(TOTAL)
     Route: 048
     Dates: start: 20190726, end: 20190726
  2. SPASFON (PHLOROGLUCINOL/TRIMETHYLPHLOROGLUCINOL) [Suspect]
     Active Substance: PHLOROGLUCINOL\1,3,5-TRIMETHOXYBENZENE
     Indication: POISONING DELIBERATE
     Dosage: UNK
     Route: 048
  3. VERATRAN [Suspect]
     Active Substance: CLOTIAZEPAM
     Indication: POISONING DELIBERATE
     Dosage: 150 MG, UNK(TOTAL)
     Route: 048
     Dates: start: 20190726, end: 20190726

REACTIONS (4)
  - Sinus bradycardia [Recovered/Resolved]
  - Disturbance in attention [Recovered/Resolved]
  - Hypotension [Recovered/Resolved]
  - Analgesic drug level increased [Recovered/Resolved]

NARRATIVE: CASE EVENT DATE: 20190726
